FAERS Safety Report 13177356 (Version 1)
Quarter: 2017Q1

REPORT INFORMATION
  Report Type: Report from Study
  Country: US (occurrence: US)
  Receive Date: 20170201
  Receipt Date: 20170201
  Transmission Date: 20170428
  Serious: Yes (Other)
  Sender: FDA-Public Use
  Company Number: US-EXELIXIS-CABO-16005968

PATIENT
  Age: 72 Year
  Sex: Male

DRUGS (4)
  1. COMETRIQ [Suspect]
     Active Substance: CABOZANTINIB S-MALATE
     Dosage: 40 MG, QD
     Route: 048
     Dates: start: 20160414, end: 20160515
  2. COMETRIQ [Suspect]
     Active Substance: CABOZANTINIB S-MALATE
     Dosage: 60 MG, QD
     Route: 048
     Dates: start: 20160304, end: 201604
  3. COMETRIQ [Suspect]
     Active Substance: CABOZANTINIB S-MALATE
     Dosage: 40 MG, QD
     Route: 048
     Dates: start: 2016, end: 201607
  4. COMETRIQ [Suspect]
     Active Substance: CABOZANTINIB S-MALATE
     Indication: RENAL CANCER
     Dosage: 60 MG, QD
     Route: 048
     Dates: start: 20151204, end: 201602

REACTIONS (9)
  - Cellulitis [Recovered/Resolved]
  - Tenderness [Unknown]
  - Mass [Not Recovered/Not Resolved]
  - Dizziness [Recovered/Resolved]
  - Dry skin [Recovered/Resolved]
  - Pain [Unknown]
  - Drug ineffective for unapproved indication [Unknown]
  - Blister [Not Recovered/Not Resolved]
  - Off label use [Unknown]

NARRATIVE: CASE EVENT DATE: 20160120
